FAERS Safety Report 9892437 (Version 2)
Quarter: 2014Q2

REPORT INFORMATION
  Report Type: Spontaneous
  Country: US (occurrence: US)
  Receive Date: 20140212
  Receipt Date: 20140609
  Transmission Date: 20141212
  Serious: Yes (Other)
  Sender: FDA-Public Use
  Company Number: US-009507513-1402USA004401

PATIENT
  Age: 43 Year
  Sex: Male
  Weight: 83.9 kg

DRUGS (5)
  1. CORICIDIN HBP CHEST CONGESTION AND COUGH [Suspect]
     Indication: PRODUCT USED FOR UNKNOWN INDICATION
     Dosage: UNK MG, UNKNOWN
     Route: 048
  2. CORICIDIN HBP CHEST CONGESTION AND COUGH [Suspect]
     Indication: COUGH
     Dosage: 10/200MG, QD
     Route: 048
     Dates: start: 20140130, end: 20140131
  3. ZIAC [Concomitant]
     Indication: HYPERTENSION
     Dosage: UNK, UNKNOWN
     Route: 065
  4. CRESTOR [Concomitant]
     Indication: LIPIDS
     Dosage: UNK, UNKNOWN
     Route: 065
  5. CRESTOR [Concomitant]
     Indication: HYPERTENSION

REACTIONS (10)
  - Angioedema [Recovered/Resolved]
  - Drug hypersensitivity [Recovered/Resolved]
  - Urticaria [Recovered/Resolved]
  - Lip swelling [Recovered/Resolved]
  - Swelling face [Recovered/Resolved]
  - Local swelling [Recovered/Resolved]
  - Palatal oedema [Recovered/Resolved]
  - Dysphagia [Recovered/Resolved]
  - Hyperhidrosis [Recovered/Resolved]
  - Pruritus [Recovered/Resolved]
